FAERS Safety Report 9969703 (Version 1)
Quarter: 2014Q1

REPORT INFORMATION
  Report Type: Spontaneous
  Country: US (occurrence: None)
  Receive Date: 20140304
  Receipt Date: 20140304
  Transmission Date: 20141002
  Serious: Yes (Life-Threatening)
  Sender: FDA-Public Use
  Company Number: None

PATIENT
  Age: 52 Year
  Sex: Female
  Weight: 78.02 kg

DRUGS (2)
  1. LYRICA [Suspect]
     Indication: NEURALGIA
     Dosage: TAKEN BY MOUTH
     Dates: start: 20140121, end: 20140210
  2. LYRICA [Suspect]
     Dosage: TAKEN BY MOUTH
     Dates: start: 20140121, end: 20140210

REACTIONS (8)
  - Hypoaesthesia [None]
  - Paraesthesia [None]
  - Euphoric mood [None]
  - Fatigue [None]
  - Dry mouth [None]
  - Dizziness [None]
  - Cough [None]
  - Anaphylactic reaction [None]
